FAERS Safety Report 13842528 (Version 9)
Quarter: 2017Q4

REPORT INFORMATION
  Report Type: Spontaneous
  Country: JP (occurrence: JP)
  Receive Date: 20170808
  Receipt Date: 20171219
  Transmission Date: 20180320
  Serious: Yes (Hospitalization, Other)
  Sender: FDA-Public Use
  Company Number: JP-009507513-1708JPN000107J

PATIENT
  Age: 68 Year
  Sex: Female
  Weight: 34 kg

DRUGS (2)
  1. KEYTRUDA [Suspect]
     Active Substance: PEMBROLIZUMAB
     Indication: LUNG ADENOCARCINOMA
     Dosage: 200 MG, Q3W
     Route: 041
     Dates: start: 20170501, end: 20170703
  2. KEYTRUDA [Suspect]
     Active Substance: PEMBROLIZUMAB
     Dosage: 200 MG, Q3W
     Route: 041
     Dates: start: 20170821, end: 20170821

REACTIONS (2)
  - Liver disorder [Recovered/Resolved]
  - Cholecystitis acute [Recovering/Resolving]

NARRATIVE: CASE EVENT DATE: 20170718
